FAERS Safety Report 15637436 (Version 1)
Quarter: 2018Q4

REPORT INFORMATION
  Report Type: Spontaneous
  Country: US (occurrence: US)
  Receive Date: 20181120
  Receipt Date: 20181120
  Transmission Date: 20190205
  Serious: No
  Sender: FDA-Public Use
  Company Number: US-JNJFOC-20180529578

PATIENT
  Sex: Male

DRUGS (15)
  1. FOLIC ACID. [Concomitant]
     Active Substance: FOLIC ACID
  2. POTASSIUM [Concomitant]
     Active Substance: POTASSIUM
  3. CARAFATE [Concomitant]
     Active Substance: SUCRALFATE
  4. IMBRUVICA [Suspect]
     Active Substance: IBRUTINIB
     Indication: CHRONIC LYMPHOCYTIC LEUKAEMIA
     Route: 048
     Dates: start: 20171019
  5. ASPIRIN. [Concomitant]
     Active Substance: ASPIRIN
  6. GAZYVA [Concomitant]
     Active Substance: OBINUTUZUMAB
  7. PREDNISONE. [Concomitant]
     Active Substance: PREDNISONE
  8. GABAPENTIN. [Concomitant]
     Active Substance: GABAPENTIN
  9. BENZONATATE. [Concomitant]
     Active Substance: BENZONATATE
  10. CITALOPRAM [Concomitant]
     Active Substance: CITALOPRAM HYDROBROMIDE
  11. LANTUS [Concomitant]
     Active Substance: INSULIN GLARGINE
  12. ONDANSETRON [Concomitant]
     Active Substance: ONDANSETRON
  13. FENOFIBRATE. [Concomitant]
     Active Substance: FENOFIBRATE
  14. HUMALOG [Concomitant]
     Active Substance: INSULIN LISPRO
  15. PANTOPRAZOLE [Concomitant]
     Active Substance: PANTOPRAZOLE

REACTIONS (2)
  - Listeriosis [Unknown]
  - Food poisoning [Unknown]
